FAERS Safety Report 14018273 (Version 1)
Quarter: 2017Q3

REPORT INFORMATION
  Report Type: Spontaneous
  Country: KR (occurrence: KR)
  Receive Date: 20170928
  Receipt Date: 20170928
  Transmission Date: 20171128
  Serious: Yes (Death, Hospitalization)
  Sender: FDA-Public Use
  Company Number: KR-ACTELION-A-CH2017-159943

PATIENT
  Age: 19 Year
  Sex: Female

DRUGS (1)
  1. OPSUMIT [Suspect]
     Active Substance: MACITENTAN
     Indication: PULMONARY ARTERIAL HYPERTENSION
     Dosage: 1 TABLET
     Route: 048
     Dates: start: 201609, end: 20170918

REACTIONS (4)
  - Menorrhagia [Fatal]
  - Haemorrhage [Fatal]
  - Anaemia [Unknown]
  - Transfusion [Unknown]
